FAERS Safety Report 7767213 (Version 3)
Quarter: 2014Q2

REPORT INFORMATION
  Report Type: Spontaneous
  Country: US (occurrence: US)
  Receive Date: 20110120
  Receipt Date: 20140416
  Transmission Date: 20141212
  Serious: Yes (Hospitalization)
  Sender: FDA-Public Use
  Company Number: US-B.I. PHARMACEUTICALS,INC./RIDGEFIELD-2011-BP-01051BP

PATIENT
  Age: 75 Year
  Sex: Male
  Weight: 68 kg

DRUGS (7)
  1. PRADAXA [Suspect]
     Indication: ATRIAL FIBRILLATION
     Dosage: 300 MG
     Route: 048
     Dates: start: 201011, end: 201101
  2. PLAVIX [Concomitant]
     Route: 065
  3. FUROSEKMIDE [Concomitant]
     Route: 065
     Dates: start: 1999
  4. LEVOTHYROXINE [Concomitant]
     Route: 065
     Dates: start: 1999
  5. SIMVASTATIN [Concomitant]
     Route: 065
     Dates: start: 1999
  6. LOSARTAN [Concomitant]
     Route: 065
     Dates: start: 1999
  7. ISOSORBIDE [Concomitant]
     Route: 065
     Dates: start: 1999

REACTIONS (3)
  - Gastrointestinal haemorrhage [Unknown]
  - Myocardial infarction [Unknown]
  - Epistaxis [Recovered/Resolved]
